FAERS Safety Report 6693205-0 (Version None)
Quarter: 2010Q2

REPORT INFORMATION
  Report Type: 
  Country: None (occurrence: None)
  Receive Date: 20100421
  Receipt Date: 20100421
  Transmission Date: 20101027
  Serious: Yes (Other)
  Sender: FDA-Public Use
  Company Number: None

PATIENT
  Age: 60 Year
  Sex: Female
  Weight: 111.1313 kg

DRUGS (2)
  1. TRAMADOL HCL [Suspect]
     Indication: ARTHRITIS
     Dosage: 1-2 TABLETS EVERY 4-6 HOURS PO
     Route: 048
     Dates: start: 20100413, end: 20100415
  2. TRAMADOL HCL [Suspect]
     Indication: BACK PAIN
     Dosage: 1-2 TABLETS EVERY 4-6 HOURS PO
     Route: 048
     Dates: start: 20100413, end: 20100415

REACTIONS (9)
  - CHILLS [None]
  - FATIGUE [None]
  - HEADACHE [None]
  - INFLUENZA LIKE ILLNESS [None]
  - MUSCULAR WEAKNESS [None]
  - NAUSEA [None]
  - PAIN [None]
  - PYREXIA [None]
  - VOMITING [None]
